FAERS Safety Report 25790649 (Version 1)
Quarter: 2025Q3

REPORT INFORMATION
  Report Type: Spontaneous
  Country: US (occurrence: None)
  Receive Date: 20250910
  Receipt Date: 20250910
  Transmission Date: 20251021
  Serious: Yes (Hospitalization)
  Sender: FDA-CTU
  Company Number: None

PATIENT
  Sex: Male

DRUGS (11)
  1. XOLAIR [Suspect]
     Active Substance: OMALIZUMAB
     Dosage: INJECT 2 SYRINGES WITH ONE 75MG SYRINGE UNDER THE SKIN (SUBCUTANEOUS INJECTION) EVERY 14 DAYS?
     Route: 058
  2. ALBUTEROL AER HFA [Concomitant]
  3. AMLODIPINE [Concomitant]
     Active Substance: AMLODIPINE BESYLATE
  4. BISOPROLOL FUMARATE [Concomitant]
     Active Substance: BISOPROLOL FUMARATE
  5. COLCHICINE [Concomitant]
     Active Substance: COLCHICINE
  6. DULERA AER [Concomitant]
  7. EPIPEN [Concomitant]
     Active Substance: EPINEPHRINE
  8. IBUPROFEN [Concomitant]
     Active Substance: IBUPROFEN
  9. LASIX [Concomitant]
     Active Substance: FUROSEMIDE
  10. NORVASC [Concomitant]
     Active Substance: AMLODIPINE BESYLATE
  11. PREDNISONE [Concomitant]
     Active Substance: PREDNISONE

REACTIONS (2)
  - Epistaxis [None]
  - Quality of life decreased [None]
